FAERS Safety Report 9282670 (Version 2)
Quarter: 2013Q2

REPORT INFORMATION
  Report Type: Spontaneous
  Country: US (occurrence: None)
  Receive Date: 20101130
  Receipt Date: 20130419
  Transmission Date: 20140414
  Serious: No
  Sender: FDA-Public Use
  Company Number: 54973 RSAE110610JAB003

PATIENT
  Age: 0 Day
  Sex: Female
  Weight: 9.53 kg

DRUGS (1)
  1. HYLAND^S TEETHING TABLETS [Suspect]
     Indication: TEETHING
     Dosage: 2  TABS  Q4H

REACTIONS (1)
  - Convulsion [None]
